FAERS Safety Report 5713712-4 (Version None)
Quarter: 2008Q2

REPORT INFORMATION
  Report Type: 
  Country: None (occurrence: None)
  Receive Date: 20080418
  Receipt Date: 20080407
  Transmission Date: 20081010
  Serious: Yes (Hospitalization)
  Sender: FDA-Public Use
  Company Number: GXKR2008IN03423

PATIENT
  Age: 50 Year
  Sex: Female

DRUGS (2)
  1. MIRTAZAPINE [Suspect]
     Indication: DEPRESSION
     Dosage: 7.5 MG, QD
  2. PHENYTOIN [Suspect]
     Indication: PARTIAL SEIZURES WITH SECONDARY GENERALISATION
     Dosage: 200 MG, OD

REACTIONS (2)
  - DRUG INTERACTION [None]
  - PARTIAL SEIZURES WITH SECONDARY GENERALISATION [None]
